FAERS Safety Report 13691614 (Version 1)
Quarter: 2017Q2

REPORT INFORMATION
  Report Type: Report from Study
  Country: BR (occurrence: BR)
  Receive Date: 20170626
  Receipt Date: 20170626
  Transmission Date: 20170830
  Serious: Yes (Other)
  Sender: FDA-Public Use
  Company Number: PHHY2017BR092117

PATIENT
  Sex: Female

DRUGS (1)
  1. ACLASTA [Suspect]
     Active Substance: ZOLEDRONIC ACID
     Indication: OSTEOPOROSIS
     Dosage: 1 DF (5 MG/100 ML), Q12MO
     Route: 042

REACTIONS (6)
  - Hypoacusis [Unknown]
  - Hypertension [Unknown]
  - Fluid intake reduced [Unknown]
  - Ear pain [Unknown]
  - Cholelithiasis [Unknown]
  - Pollakiuria [Unknown]
